FAERS Safety Report 7473138 (Version 5)
Quarter: 2014Q1

REPORT INFORMATION
  Report Type: Report from Study
  Country: IT (occurrence: IT)
  Receive Date: 20100714
  Receipt Date: 20140313
  Transmission Date: 20141002
  Serious: Yes (Death, Other)
  Sender: FDA-Public Use
  Company Number: IT-CELGENEUS-083-20785-09042042

PATIENT
  Sex: 0

DRUGS (6)
  1. THALIDOMIDE [Suspect]
     Indication: PLASMA CELL MYELOMA
     Dosage: 50 MILLIGRAM
     Route: 048
  2. BORTEZOMIB [Suspect]
     Indication: PLASMA CELL MYELOMA
     Dosage: 1.3 MILLIGRAM/SQ. METER
     Route: 041
  3. BORTEZOMIB [Suspect]
     Dosage: 1.3 MILLIGRAM/SQ. METER
     Route: 065
  4. BORTEZOMIB [Suspect]
     Dosage: 1.3 MICROGRAM
     Route: 065
  5. MELPHALAN [Suspect]
     Indication: PLASMA CELL MYELOMA
     Dosage: 9 MILLIGRAM/SQ. METER
     Route: 048
  6. PREDNISONE [Suspect]
     Indication: PLASMA CELL MYELOMA
     Dosage: 60 MILLIGRAM/SQ. METER
     Route: 048

REACTIONS (37)
  - Second primary malignancy [Fatal]
  - Death [Fatal]
  - Embolism venous [Fatal]
  - Cardiac disorder [Fatal]
  - Plasma cell myeloma [Fatal]
  - Infection [Fatal]
  - Lung disorder [Fatal]
  - Pericardial effusion [Unknown]
  - Arrhythmia [Unknown]
  - Angina pectoris [Unknown]
  - Myocardial infarction [Unknown]
  - Haemorrhage [Unknown]
  - Sepsis [Unknown]
  - Febrile neutropenia [Unknown]
  - Pulmonary embolism [Unknown]
  - Deep vein thrombosis [Unknown]
  - Neuropathy peripheral [Unknown]
  - Cerebrovascular accident [Unknown]
  - Cardiac failure [Unknown]
  - Thrombocytopenia [Unknown]
  - Diarrhoea [Unknown]
  - Anaemia [Unknown]
  - Neutropenia [Unknown]
  - Neuralgia [Unknown]
  - Viral infection [Unknown]
  - Constipation [Unknown]
  - Nausea [Unknown]
  - Vomiting [Unknown]
  - Fatigue [Unknown]
  - Skin disorder [Unknown]
  - Pyrexia [Unknown]
  - Confusional state [Unknown]
  - Pneumonia [Unknown]
  - Oedema peripheral [Unknown]
  - Rash [Unknown]
  - Peripheral sensory neuropathy [Unknown]
  - Depression [Unknown]
